FAERS Safety Report 21306241 (Version 1)
Quarter: 2022Q3

REPORT INFORMATION
  Report Type: Spontaneous
  Country: US (occurrence: None)
  Receive Date: 20220907
  Receipt Date: 20220907
  Transmission Date: 20221027
  Serious: Yes (Hospitalization)
  Sender: FDA-Public Use
  Company Number: None

PATIENT
  Sex: Female

DRUGS (1)
  1. XOLAIR [Suspect]
     Active Substance: OMALIZUMAB
     Indication: Asthma
     Dosage: INJECT 300 MG UNDER THE SKIN (SUBCUTANEOUS INJECTION) EVERY 2 WEEKS?
     Route: 058
     Dates: start: 20170802

REACTIONS (8)
  - Arthralgia [None]
  - Arthritis [None]
  - Abdominal discomfort [None]
  - Gastrooesophageal reflux disease [None]
  - Skin discolouration [None]
  - Chills [None]
  - Peripheral coldness [None]
  - Limb mass [None]
